FAERS Safety Report 7325326 (Version 2)
Quarter: 2016Q1

REPORT INFORMATION
  Report Type: Spontaneous
  Country: FR (occurrence: FR)
  Receive Date: 20100319
  Receipt Date: 20160114
  Transmission Date: 20160526
  Serious: Yes (Hospitalization, Congenital Anomaly)
  Sender: FDA-Public Use
  Company Number: FR-BRISTOL-MYERS SQUIBB COMPANY-15010663

PATIENT
  Sex: Male
  Weight: 3.7 kg

DRUGS (2)
  1. LAROXYL [Suspect]
     Active Substance: AMITRIPTYLINE
     Indication: PRODUCT USED FOR UNKNOWN INDICATION
     Dosage: 50 MG, QD
     Route: 064
  2. ABILIFY [Suspect]
     Active Substance: ARIPIPRAZOLE
     Indication: PRODUCT USED FOR UNKNOWN INDICATION
     Dosage: 15 MG, QD
     Route: 064

REACTIONS (2)
  - Cryptorchism [Not Recovered/Not Resolved]
  - Foetal exposure during pregnancy [Recovered/Resolved]
